FAERS Safety Report 8965657 (Version 1)
Quarter: 2012Q4

REPORT INFORMATION
  Report Type: Spontaneous
  Country: US (occurrence: None)
  Receive Date: 20121212
  Receipt Date: 20121212
  Transmission Date: 20130627
  Serious: Yes (Life-Threatening, Other)
  Sender: FDA-Public Use
  Company Number: None

PATIENT
  Age: 42 Year
  Sex: Female
  Weight: 70.31 kg

DRUGS (2)
  1. LAMOTRIGINE [Suspect]
     Indication: BIPOLAR DISORDER
     Dosage: 200mg  1 x per day   po
     Route: 048
     Dates: start: 20121111, end: 20121208
  2. LAMOTRIGINE [Suspect]
     Indication: DEPRESSION
     Dosage: 200mg  1 x per day   po
     Route: 048
     Dates: start: 20121111, end: 20121208

REACTIONS (7)
  - Drug ineffective [None]
  - Mood swings [None]
  - Product substitution issue [None]
  - Anxiety [None]
  - Agitation [None]
  - Depression suicidal [None]
  - Drug dispensing error [None]
